FAERS Safety Report 17684692 (Version 1)
Quarter: 2020Q2

REPORT INFORMATION
  Report Type: Spontaneous
  Country: US (occurrence: US)
  Receive Date: 20200417
  Receipt Date: 20200417
  Transmission Date: 20200714
  Serious: Yes (Hospitalization)
  Sender: FDA-Public Use
  Company Number: None

PATIENT
  Age: 76 Year
  Sex: Female

DRUGS (35)
  1. FLORASTOR [Concomitant]
     Active Substance: SACCHAROMYCES CEREVISIAE
  2. JANUMET XR [Concomitant]
     Active Substance: METFORMIN HYDROCHLORIDE\SITAGLIPTIN PHOSPHATE
  3. POT CL MICRO [Concomitant]
  4. ROPINIROLE. [Suspect]
     Active Substance: ROPINIROLE
  5. AZELAIC ACID. [Concomitant]
     Active Substance: AZELAIC ACID
  6. BUSPIRONE [Concomitant]
     Active Substance: BUSPIRONE HYDROCHLORIDE
  7. LUMIGAN [Concomitant]
     Active Substance: BIMATOPROST
  8. MAG OXIDE [Concomitant]
     Active Substance: MAGNESIUM OXIDE
  9. OMEPRAZOLE. [Concomitant]
     Active Substance: OMEPRAZOLE
  10. URSODIOL. [Concomitant]
     Active Substance: URSODIOL
  11. ESBRIET [Suspect]
     Active Substance: PIRFENIDONE
     Indication: IDIOPATHIC PULMONARY FIBROSIS
     Route: 048
     Dates: start: 20181006
  12. DOXYCYCL HYDC [Concomitant]
  13. ELIQUIS [Concomitant]
     Active Substance: APIXABAN
  14. PONARIS [Concomitant]
  15. AZELASTINE. [Concomitant]
     Active Substance: AZELASTINE HYDROCHLORIDE
  16. LOSARTAN POT [Concomitant]
     Active Substance: LOSARTAN POTASSIUM
  17. TRIAMCINOLONE CRE [Concomitant]
  18. METHYLPRED [Concomitant]
     Active Substance: METHYLPREDNISOLONE
  19. POT CHLORIDE [Concomitant]
     Active Substance: POTASSIUM CHLORIDE
  20. ROSUVASTATIN. [Concomitant]
     Active Substance: ROSUVASTATIN
  21. CYANOCOBALAM [Concomitant]
     Active Substance: CYANOCOBALAMIN
  22. DYMISTIA [Concomitant]
  23. MATXIM LA [Concomitant]
  24. METOPROLOL TAR [Concomitant]
     Active Substance: METOPROLOL TARTRATE
  25. METRONIDAZOL [Concomitant]
     Active Substance: METRONIDAZOLE
  26. NIITROGLYCRN [Concomitant]
  27. CLINDAMYCIN. [Concomitant]
     Active Substance: CLINDAMYCIN
  28. CYCLOBENZAPR [Concomitant]
     Active Substance: CYCLOBENZAPRINE
  29. DIGOXIN. [Concomitant]
     Active Substance: DIGOXIN
  30. BENZONATATE. [Concomitant]
     Active Substance: BENZONATATE
  31. BUMETANIDE. [Concomitant]
     Active Substance: BUMETANIDE
  32. FLUCONAZOLE. [Concomitant]
     Active Substance: FLUCONAZOLE
  33. FOLBEE [Concomitant]
     Active Substance: CYANOCOBALAMIN\FOLIC ACID\PYRIDOXINE HYDROCHLORIDE
  34. ONDANSETRON [Concomitant]
     Active Substance: ONDANSETRON
  35. RHOPRESSA [Concomitant]
     Active Substance: NETARSUDIL MESYLATE

REACTIONS (2)
  - Blood magnesium decreased [None]
  - Therapy interrupted [None]

NARRATIVE: CASE EVENT DATE: 202003
